FAERS Safety Report 9904633 (Version 1)
Quarter: 2014Q1

REPORT INFORMATION
  Report Type: Report from Study
  Country: US (occurrence: US)
  Receive Date: 20140218
  Receipt Date: 20140218
  Transmission Date: 20141002
  Serious: Yes (Other)
  Sender: FDA-Public Use
  Company Number: US-ASTELLAS-2014US001682

PATIENT
  Sex: 0

DRUGS (2)
  1. ERLOTINIB TABLET [Suspect]
     Indication: NEOPLASM
     Dosage: 100 MG, UID/QD
     Route: 065
  2. ANTINEOPLASTIC AGENTS [Suspect]
     Indication: NEOPLASM
     Dosage: 70 MG, UID/QD
     Route: 065

REACTIONS (1)
  - Drug reaction with eosinophilia and systemic symptoms [Unknown]
